FAERS Safety Report 5499157-3 (Version None)
Quarter: 2007Q4

REPORT INFORMATION
  Report Type: 
  Country: None (occurrence: None)
  Receive Date: 20071026
  Receipt Date: 20071019
  Transmission Date: 20080405
  Serious: Yes (Other)
  Sender: FDA-Public Use
  Company Number: PHFR2007GB03091

PATIENT
  Age: 46 Year

DRUGS (2)
  1. GLEEVEC [Suspect]
     Indication: CHRONIC MYELOID LEUKAEMIA
     Dosage: 400 MG/DAY
     Route: 065
  2. GLEEVEC [Suspect]
     Dosage: 200 MG/DAY
     Route: 065

REACTIONS (4)
  - ACUTE LYMPHOCYTIC LEUKAEMIA [None]
  - ACUTE MYELOID LEUKAEMIA [None]
  - NEUTROPENIC SEPSIS [None]
  - TRANSPLANT [None]
